FAERS Safety Report 26025828 (Version 1)
Quarter: 2025Q4

REPORT INFORMATION
  Report Type: Spontaneous
  Country: GB (occurrence: None)
  Receive Date: 20251111
  Receipt Date: 20251111
  Transmission Date: 20260118
  Serious: Yes (Other)
  Sender: ORION
  Company Number: None

PATIENT
  Age: 85 Year
  Sex: Female

DRUGS (8)
  1. METHOTREXATE [Suspect]
     Active Substance: METHOTREXATE
     Indication: Psoriasis
     Dates: start: 20170927, end: 20251030
  2. APIXABAN [Concomitant]
     Active Substance: APIXABAN
  3. FELODIPINE [Concomitant]
     Active Substance: FELODIPINE
  4. BISOPROLOL [Concomitant]
     Active Substance: BISOPROLOL
  5. BETAMETHASONE DIPROPIONATE\CALCIPOTRIENE MONOHYDRATE [Concomitant]
     Active Substance: BETAMETHASONE DIPROPIONATE\CALCIPOTRIENE MONOHYDRATE
  6. FOLIC ACID [Concomitant]
     Active Substance: FOLIC ACID
  7. FUROSEMIDE [Concomitant]
     Active Substance: FUROSEMIDE
  8. DIGOXIN [Concomitant]
     Active Substance: DIGOXIN

REACTIONS (1)
  - Fibrosis [Unknown]
